FAERS Safety Report 6105006-2 (Version None)
Quarter: 2009Q1

REPORT INFORMATION
  Report Type: 
  Country: None (occurrence: None)
  Receive Date: 20090304
  Receipt Date: 20090304
  Transmission Date: 20090719
  Serious: Yes (Hospitalization)
  Sender: FDA-Public Use
  Company Number: None

PATIENT
  Sex: Male
  Weight: 117.93 kg

DRUGS (2)
  1. METHOTREXATE [Suspect]
     Dosage: 3.5 G
  2. RITUXIMAB (MOAB C2B8 ANTI CD20, CHIMERIC) [Suspect]
     Dosage: 375 MG

REACTIONS (6)
  - HAEMODIALYSIS [None]
  - HEPATIC ENZYME INCREASED [None]
  - MUCOSAL INFLAMMATION [None]
  - MYOCARDIAL INFARCTION [None]
  - PANCYTOPENIA [None]
  - RENAL FAILURE [None]
